FAERS Safety Report 10438330 (Version 1)
Quarter: 2014Q3

REPORT INFORMATION
  Report Type: Spontaneous
  Country: US (occurrence: None)
  Receive Date: 20140815
  Receipt Date: 20140815
  Transmission Date: 20150326
  Serious: No
  Sender: FDA-Public Use
  Company Number: 2014TUS003543

PATIENT
  Sex: Female

DRUGS (1)
  1. BRINTELLIX [Suspect]
     Active Substance: VORTIOXETINE HYDROBROMIDE
     Route: 048
     Dates: start: 201403, end: 201404

REACTIONS (4)
  - Weight increased [None]
  - Abdominal discomfort [None]
  - Diarrhoea [None]
  - Somnolence [None]

NARRATIVE: CASE EVENT DATE: 201403
